FAERS Safety Report 7946483-1 (Version None)
Quarter: 2011Q4

REPORT INFORMATION
  Report Type: 
  Country: None (occurrence: None)
  Receive Date: 20111129
  Receipt Date: 20111117
  Transmission Date: 20120403
  Serious: Yes (Hospitalization)
  Sender: FDA-Public Use
  Company Number: IT-PFIZER INC-2011282158

PATIENT
  Age: 49 Year
  Sex: Female

DRUGS (1)
  1. EXEMESTANE [Suspect]
     Indication: BREAST CANCER FEMALE
     Dosage: 25 MG, UNK
     Route: 048
     Dates: start: 20070627

REACTIONS (2)
  - NEOPLASM MALIGNANT [None]
  - CONTRALATERAL BREAST CANCER [None]
